FAERS Safety Report 12968603 (Version 4)
Quarter: 2017Q1

REPORT INFORMATION
  Report Type: Spontaneous
  Country: US (occurrence: US)
  Receive Date: 20161123
  Receipt Date: 20170224
  Transmission Date: 20170428
  Serious: Yes (Hospitalization, Other)
  Sender: FDA-Public Use
  Company Number: US-BAYER-2016-223333

PATIENT
  Age: 22 Year
  Sex: Female
  Weight: 122.45 kg

DRUGS (2)
  1. MIRENA [Suspect]
     Active Substance: LEVONORGESTREL
     Indication: CONTRACEPTION
     Dosage: 20 MCG/24HR, CONT
     Route: 015
     Dates: start: 20090424, end: 20141117
  2. PHENERGAN AND CHLORAL HYDRATE [Concomitant]
     Indication: INFECTION
     Dosage: UNK
     Dates: start: 200807, end: 2011

REACTIONS (12)
  - Device issue [None]
  - Depression [None]
  - Pain [None]
  - Device use issue [None]
  - Migraine [None]
  - Infertility female [None]
  - Embedded device [None]
  - Habitual abortion [None]
  - Anxiety [None]
  - Abnormal weight gain [None]
  - Abdominal pain upper [None]
  - Pelvic inflammatory disease [None]

NARRATIVE: CASE EVENT DATE: 200910
